FAERS Safety Report 8313206-6 (Version None)
Quarter: 2012Q2

REPORT INFORMATION
  Report Type: 
  Country: None (occurrence: None)
  Receive Date: 20120426
  Receipt Date: 20120423
  Transmission Date: 20120825
  Serious: Yes (Life-Threatening, Hospitalization)
  Sender: FDA-Public Use
  Company Number: FR-ASTRAZENECA-2012SE26305

PATIENT
  Age: 47 Year
  Sex: Female

DRUGS (3)
  1. XEROQUEL [Suspect]
     Route: 048
  2. TERCIAN [Suspect]
     Route: 048
  3. EFFEXOR [Suspect]
     Route: 048

REACTIONS (2)
  - COMA [None]
  - POISONING DELIBERATE [None]
